FAERS Safety Report 4968266-7 (Version None)
Quarter: 2006Q2

REPORT INFORMATION
  Report Type: 
  Country: None (occurrence: None)
  Receive Date: 20060405
  Receipt Date: 20060320
  Transmission Date: 20061013
  Serious: Yes (Disabling)
  Sender: FDA-Public Use
  Company Number: 8015862

PATIENT
  Age: 51 Year
  Sex: Female

DRUGS (3)
  1. KEPPRA [Suspect]
     Indication: EPILEPSY
     Dates: start: 20040701
  2. KEPPRA [Suspect]
     Indication: EPILEPSY
     Dates: start: 20040701
  3. FRISIUM [Suspect]
     Indication: EPILEPSY
     Dosage: 10 MG / PO
     Route: 048
     Dates: start: 20050801

REACTIONS (2)
  - CONDITION AGGRAVATED [None]
  - CONVULSION [None]
